FAERS Safety Report 4646124-5 (Version None)
Quarter: 2005Q2

REPORT INFORMATION
  Report Type: 
  Country: None (occurrence: None)
  Receive Date: 20050427
  Receipt Date: 20041028
  Transmission Date: 20051028
  Serious: No
  Sender: FDA-Public Use
  Company Number: US-GLAXOSMITHKLINE-A0531764A

PATIENT
  Sex: Female

DRUGS (4)
  1. ZOFRAN [Suspect]
     Indication: VOMITING
     Dosage: 4MG UNKNOWN
     Route: 048
  2. VICODIN [Suspect]
     Indication: DRUG USE FOR UNKNOWN INDICATION
     Route: 065
  3. PREDNISON [Concomitant]
  4. ANTIBIOTIC [Concomitant]

REACTIONS (1)
  - VOMITING [None]
